FAERS Safety Report 15594522 (Version 2)
Quarter: 2019Q1

REPORT INFORMATION
  Report Type: Spontaneous
  Country: US (occurrence: US)
  Receive Date: 20181107
  Receipt Date: 20190123
  Transmission Date: 20190417
  Serious: No
  Sender: FDA-Public Use
  Company Number: US-MERZ NORTH AMERICA, INC.-18MRZ-00580

PATIENT
  Age: 36 Year
  Sex: Female
  Weight: 82.63 kg

DRUGS (2)
  1. XEOMIN [Suspect]
     Active Substance: INCOBOTULINUMTOXINA
     Indication: SKIN ATROPHY
     Dosage: TOTAL OF 25 UNITS OF XEOMIN INJECTED INTO FOREHEAD (7 UNITS), CROWSFEET (4 UNITS EACH SIDE) AND GLAB
     Route: 030
     Dates: start: 20181030, end: 20181030
  2. XEOMIN [Suspect]
     Active Substance: INCOBOTULINUMTOXINA
     Indication: SKIN WRINKLING

REACTIONS (2)
  - Burning sensation [Recovered/Resolved]
  - Pain [Recovered/Resolved]

NARRATIVE: CASE EVENT DATE: 20181030
